FAERS Safety Report 17760881 (Version 6)
Quarter: 2021Q1

REPORT INFORMATION
  Report Type: Spontaneous
  Country: US (occurrence: US)
  Receive Date: 20200508
  Receipt Date: 20210315
  Transmission Date: 20210419
  Serious: Yes (Other)
  Sender: FDA-Public Use
  Company Number: US-PFIZER INC-2020183183

PATIENT
  Age: 73 Year
  Sex: Female
  Weight: 102.06 kg

DRUGS (7)
  1. INLYTA [Suspect]
     Active Substance: AXITINIB
     Dosage: 4 MG, TWICE DAILY
     Route: 048
  2. INLYTA [Suspect]
     Active Substance: AXITINIB
     Indication: PANCREATIC NEOPLASM
     Dosage: 6 MG, TWICE DAILY
     Route: 048
     Dates: start: 201902
  3. INLYTA [Suspect]
     Active Substance: AXITINIB
     Dosage: 6 MG
     Route: 048
  4. INLYTA [Suspect]
     Active Substance: AXITINIB
     Dosage: 3 MG, TWICE DAILY
  5. INLYTA [Suspect]
     Active Substance: AXITINIB
     Dosage: 1 MG
  6. KEYTRUDA [Concomitant]
     Active Substance: PEMBROLIZUMAB
     Dosage: UNK
  7. PREDNISONE. [Concomitant]
     Active Substance: PREDNISONE
     Indication: ARTHROPATHY
     Dosage: 1.5 MG, DAILY

REACTIONS (9)
  - Arthritis [Recovering/Resolving]
  - Rheumatoid arthritis [Unknown]
  - Diarrhoea [Unknown]
  - Pain [Unknown]
  - Bowel movement irregularity [Unknown]
  - Off label use [Unknown]
  - Irritable bowel syndrome [Not Recovered/Not Resolved]
  - Arthralgia [Unknown]
  - Myalgia [Unknown]

NARRATIVE: CASE EVENT DATE: 201903
